FAERS Safety Report 5707126-0 (Version None)
Quarter: 2008Q2

REPORT INFORMATION
  Report Type: 
  Country: None (occurrence: None)
  Receive Date: 20080414
  Receipt Date: 20080414
  Transmission Date: 20081010
  Serious: No
  Sender: FDA-Public Use
  Company Number: None

PATIENT
  Age: 65 Year
  Sex: Male
  Weight: 120.2032 kg

DRUGS (1)
  1. SINGULAIR [Suspect]
     Indication: HYPERSENSITIVITY
     Dosage: 1  A-DAY AS NEEDED PO
     Route: 048
     Dates: start: 20050408, end: 20080414

REACTIONS (9)
  - HEADACHE [None]
  - INSOMNIA [None]
  - IRRITABILITY [None]
  - JAW DISORDER [None]
  - NAUSEA [None]
  - PULSE ABNORMAL [None]
  - TENSION [None]
  - TINNITUS [None]
  - VISION BLURRED [None]
